FAERS Safety Report 5102497-0 (Version None)
Quarter: 2006Q3

REPORT INFORMATION
  Report Type: 
  Country: None (occurrence: None)
  Receive Date: 20060907
  Receipt Date: 20060825
  Transmission Date: 20061208
  Serious: Yes (Death)
  Sender: FDA-Public Use
  Company Number: 14699

PATIENT
  Age: 28 Year
  Sex: Female

DRUGS (2)
  1. HYDROMORPHONE HCL [Suspect]
     Indication: COMPLETED SUICIDE
  2. LORAZEPAM [Concomitant]

REACTIONS (4)
  - COMPLETED SUICIDE [None]
  - DRUG TOXICITY [None]
  - INJECTION SITE HAEMORRHAGE [None]
  - INJECTION SITE INFLAMMATION [None]
